FAERS Safety Report 19647887 (Version 2)
Quarter: 2023Q2

REPORT INFORMATION
  Report Type: Spontaneous
  Country: AU (occurrence: AU)
  Receive Date: 20210802
  Receipt Date: 20230426
  Transmission Date: 20230722
  Serious: Yes (Other)
  Sender: FDA-Public Use
  Company Number: AU-AMGEN-AUSSP2021115905

PATIENT

DRUGS (1)
  1. OTEZLA [Suspect]
     Active Substance: APREMILAST
     Indication: Product used for unknown indication
     Dosage: 30, UNK,BD
     Route: 065

REACTIONS (4)
  - Angioedema [Unknown]
  - Anaphylactic reaction [Unknown]
  - Abdominal discomfort [Unknown]
  - Headache [Unknown]
